FAERS Safety Report 19841950 (Version 3)
Quarter: 2021Q4

REPORT INFORMATION
  Report Type: Spontaneous
  Country: FR (occurrence: FR)
  Receive Date: 20210916
  Receipt Date: 20211216
  Transmission Date: 20220303
  Serious: Yes (Other)
  Sender: FDA-Public Use
  Company Number: FR-BRISTOL-MYERS SQUIBB COMPANY-BMS-2021-089839

PATIENT
  Age: 60 Year
  Sex: Female
  Weight: 55 kg

DRUGS (3)
  1. NULOJIX [Suspect]
     Active Substance: BELATACEPT
     Indication: Thrombotic microangiopathy
     Dosage: 250 MILLIGRAM
     Route: 042
     Dates: start: 20210514, end: 20210906
  2. AZATHIOPRINE [Concomitant]
     Active Substance: AZATHIOPRINE
     Indication: Renal transplant
     Dosage: 150 MILLIGRAM
     Route: 048
  3. SOLIRIS [Concomitant]
     Active Substance: ECULIZUMAB
     Indication: Hypertension
     Dosage: 150 MILLIGRAM, FOR 15 DAYS
     Route: 042

REACTIONS (3)
  - Graft loss [Unknown]
  - Drug ineffective [Unknown]
  - Intentional product use issue [Unknown]
